FAERS Safety Report 8185355-7 (Version None)
Quarter: 2012Q1

REPORT INFORMATION
  Report Type: 
  Country: None (occurrence: None)
  Receive Date: 20120305
  Receipt Date: 20120228
  Transmission Date: 20120608
  Serious: Yes (Other)
  Sender: FDA-Public Use
  Company Number: PHHY2011AU111849

PATIENT
  Sex: Female

DRUGS (5)
  1. PREDNISONE TAB [Concomitant]
     Indication: ASTHMA
     Dosage: 5 MG, DAILY
  2. ENDEP [Concomitant]
     Indication: FIBROMYALGIA
     Dosage: 50 MG, DAILY
  3. PANTOPRAZOLE [Concomitant]
     Indication: GASTROOESOPHAGEAL REFLUX DISEASE
     Dosage: 40 MG, BID
  4. ZOLEDRONOC ACID [Suspect]
     Indication: OSTEOPOROSIS
     Dosage: 5 MG, YEARLY
     Route: 042
     Dates: start: 20110701
  5. MOBIC [Concomitant]
     Indication: FIBROMYALGIA
     Dosage: UNK UKN, UNK

REACTIONS (4)
  - RIB FRACTURE [None]
  - MUSCULOSKELETAL PAIN [None]
  - VIRAL INFECTION [None]
  - ARTHRALGIA [None]
